FAERS Safety Report 15882930 (Version 1)
Quarter: 2019Q1

REPORT INFORMATION
  Report Type: Spontaneous
  Country: FR (occurrence: FR)
  Receive Date: 20190129
  Receipt Date: 20190129
  Transmission Date: 20190417
  Serious: Yes (Hospitalization)
  Sender: FDA-Public Use
  Company Number: FR-SA-200613073FR

PATIENT
  Age: 70 Year
  Sex: Male

DRUGS (14)
  1. LARGACTIL [Suspect]
     Active Substance: CHLORPROMAZINE
     Dosage: 3 DF, UNK
     Route: 048
  2. DEPAMIDE [Concomitant]
     Active Substance: VALPROMIDE
     Indication: UNEVALUABLE EVENT
     Dosage: 300 MG (DOSE UNIT: 300 MG)
     Route: 048
  3. TAMSULOSIN HYDROCHLORIDE. [Suspect]
     Active Substance: TAMSULOSIN HYDROCHLORIDE
     Indication: UNEVALUABLE EVENT
     Dosage: 0.4 MG, QD
     Route: 048
  4. LARGACTIL [Suspect]
     Active Substance: CHLORPROMAZINE
     Indication: UNEVALUABLE EVENT
     Dosage: 300 MG,QD
     Route: 048
  5. MACROGOL 3350/POTASSIUM CHLORIDE/SODIUM BICARBONATE/SODIUM CHLORIDE [Suspect]
     Active Substance: POLYETHYLENE GLYCOL 3350\POTASSIUM CHLORIDE\SODIUM BICARBONATE\SODIUM CHLORIDE
     Indication: UNEVALUABLE EVENT
     Dosage: 2.95 G, QD
     Route: 048
  6. MEPRONIZINE [ACEPROMETAZINE;MEPROBAMATE] [Concomitant]
     Indication: UNEVALUABLE EVENT
     Dosage: UNK
     Route: 048
  7. LYSANXIA [Concomitant]
     Active Substance: PRAZEPAM
     Indication: UNEVALUABLE EVENT
     Dosage: UNK
     Route: 048
  8. CERIS [Concomitant]
     Active Substance: TROSPIUM CHLORIDE
     Indication: UNEVALUABLE EVENT
     Dosage: 20 MG, UNK (20 MG)
     Route: 048
  9. LASILIX FAIBLE [Suspect]
     Active Substance: FUROSEMIDE
     Indication: UNEVALUABLE EVENT
     Dosage: 20 MG,QD
     Route: 048
  10. LASILIX FAIBLE [Suspect]
     Active Substance: FUROSEMIDE
     Dosage: 1 DF, UNK
     Route: 048
  11. LERCANIDIPINE HYDROCHLORIDE [Suspect]
     Active Substance: LERCANIDIPINE HYDROCHLORIDE
     Indication: UNEVALUABLE EVENT
     Dosage: 1 DF, UNK
     Route: 048
  12. LEPTICUR [Concomitant]
     Active Substance: TROPATEPINE HYDROCHLORIDE
     Indication: PRODUCT USED FOR UNKNOWN INDICATION
     Dosage: UNK
  13. BROMOCRIPTINE MESILATE [Suspect]
     Active Substance: BROMOCRIPTINE
     Indication: UNEVALUABLE EVENT
     Dosage: 10 MG,QD
     Route: 048
  14. SINEMET [Concomitant]
     Active Substance: CARBIDOPA\LEVODOPA
     Indication: UNEVALUABLE EVENT
     Dosage: UNK
     Route: 048

REACTIONS (5)
  - Malaise [Recovered/Resolved]
  - Dehydration [Recovered/Resolved]
  - Hyperthermia [Recovered/Resolved]
  - Renal failure [Recovered/Resolved]
  - Hypotension [Recovered/Resolved]

NARRATIVE: CASE EVENT DATE: 20060725
